FAERS Safety Report 9219079 (Version 3)
Quarter: 2014Q1

REPORT INFORMATION
  Report Type: Report from Study
  Country: JP (occurrence: JP)
  Receive Date: 20130409
  Receipt Date: 20140106
  Transmission Date: 20141002
  Serious: Yes (Hospitalization, Other)
  Sender: FDA-Public Use
  Company Number: PHHY2013JP033418

PATIENT
  Age: 39 Year
  Sex: Male

DRUGS (29)
  1. LEPONEX / CLOZARIL [Suspect]
     Indication: SCHIZOPHRENIA, DISORGANISED TYPE
     Dosage: 12.5 MG, UNK
     Route: 048
     Dates: start: 20120626, end: 20120626
  2. LEPONEX / CLOZARIL [Suspect]
     Dosage: 25 MG, UNK
     Route: 048
     Dates: start: 20120627, end: 20120629
  3. LEPONEX / CLOZARIL [Suspect]
     Dosage: 50 MG, UNK
     Route: 048
     Dates: start: 20120630, end: 20120702
  4. LEPONEX / CLOZARIL [Suspect]
     Dosage: 75 MG, UNK
     Route: 048
     Dates: start: 20120703, end: 20120704
  5. LEPONEX / CLOZARIL [Suspect]
     Dosage: 100 MG, UNK
     Route: 048
     Dates: start: 20120705, end: 20120706
  6. LEPONEX / CLOZARIL [Suspect]
     Dosage: 125 MG, UNK
     Route: 048
     Dates: start: 20120707, end: 20120709
  7. LEPONEX / CLOZARIL [Suspect]
     Dosage: 150 MG, UNK
     Route: 048
     Dates: start: 20120710, end: 20120712
  8. LEPONEX / CLOZARIL [Suspect]
     Dosage: 175 MG, UNK
     Route: 048
     Dates: start: 20120713, end: 20120715
  9. LEPONEX / CLOZARIL [Suspect]
     Dosage: 200 MG, UNK
     Route: 048
     Dates: start: 20120716, end: 20120724
  10. LEPONEX / CLOZARIL [Suspect]
     Dosage: 225 MG, UNK
     Route: 048
     Dates: start: 20120725, end: 20120731
  11. LEPONEX / CLOZARIL [Suspect]
     Dosage: 250 MG, UNK
     Route: 048
     Dates: start: 20120801, end: 20120807
  12. LEPONEX / CLOZARIL [Suspect]
     Dosage: 275 MG, UNK
     Route: 048
     Dates: start: 20120808, end: 20120814
  13. LEPONEX / CLOZARIL [Suspect]
     Dosage: 300 MG, UNK
     Route: 048
     Dates: start: 20120815, end: 20120821
  14. LEPONEX / CLOZARIL [Suspect]
     Dosage: 325 MG, UNK
     Route: 048
     Dates: start: 20120822, end: 20120825
  15. LEPONEX / CLOZARIL [Suspect]
     Dosage: 325 MG, UNK
     Route: 048
     Dates: start: 20120826, end: 20120828
  16. LEPONEX / CLOZARIL [Suspect]
     Dosage: 350 MG, UNK
     Route: 048
     Dates: start: 20120829, end: 20120904
  17. LEPONEX / CLOZARIL [Suspect]
     Dosage: 400 MG, UNK
     Route: 048
     Dates: start: 20120905, end: 20120911
  18. LEPONEX / CLOZARIL [Suspect]
     Dosage: 425 MG, UNK
     Route: 048
     Dates: start: 20120912, end: 20120925
  19. LEPONEX / CLOZARIL [Suspect]
     Dosage: 450 MG, UNK
     Route: 048
     Dates: start: 20120926
  20. SENIRAN [Concomitant]
     Indication: SCHIZOPHRENIA, DISORGANISED TYPE
     Dosage: 15 MG, UNK
     Route: 048
  21. AKINETON [Concomitant]
     Indication: SCHIZOPHRENIA, DISORGANISED TYPE
     Dosage: 6 MG, UNK
     Route: 048
  22. DIAZEPAM [Concomitant]
     Indication: SCHIZOPHRENIA, DISORGANISED TYPE
     Dosage: 10 MG, UNK
     Route: 048
  23. LOSIZOPILON [Concomitant]
     Indication: SCHIZOPHRENIA, DISORGANISED TYPE
     Dosage: 200 MG, UNK
     Route: 048
     Dates: start: 20120626
  24. LOSIZOPILON [Concomitant]
     Dosage: 150 MG, UNK
     Route: 048
  25. LOSIZOPILON [Concomitant]
     Dosage: 100 MG, UNK
     Route: 048
  26. LOSIZOPILON [Concomitant]
     Dosage: 75 MG, UNK
     Route: 048
  27. LOSIZOPILON [Concomitant]
     Dosage: 50 MG, UNK
     Route: 048
  28. LOSIZOPILON [Concomitant]
     Dosage: 25 MG, UNK
     Route: 048
     Dates: end: 20120726
  29. MAGLAX [Concomitant]
     Indication: CONSTIPATION
     Dosage: UNK
     Dates: start: 20120815

REACTIONS (4)
  - Appendicitis [Recovered/Resolved]
  - Constipation [Recovering/Resolving]
  - Blood pressure decreased [Unknown]
  - Infection [Recovering/Resolving]
